FAERS Safety Report 7729671-9 (Version None)
Quarter: 2011Q3

REPORT INFORMATION
  Report Type: 
  Country: None (occurrence: None)
  Receive Date: 20110906
  Receipt Date: 20110825
  Transmission Date: 20111222
  Serious: Yes (Death, Life-Threatening, Hospitalization, Other)
  Sender: FDA-Public Use
  Company Number: BE-CELGENEUS-013-C5013-09120129

PATIENT
  Sex: Female
  Weight: 77 kg

DRUGS (29)
  1. CALCIUM CARBONATE [Concomitant]
     Dosage: 1000 MILLIGRAM
     Route: 048
     Dates: start: 20090706, end: 20091208
  2. LENALIDOMIDE [Suspect]
     Indication: CHRONIC LYMPHOCYTIC LEUKAEMIA
     Dosage: 2.5 MILLIGRAM
     Route: 048
     Dates: start: 20091116, end: 20091127
  3. RANITIDINE [Concomitant]
     Dosage: 150 MILLIGRAM
     Route: 048
     Dates: start: 20091127, end: 20091202
  4. CLARITHROMYCIN [Concomitant]
     Dosage: 1000 MILLIGRAM
     Route: 041
     Dates: start: 20091130, end: 20091207
  5. LIPITOR [Concomitant]
     Indication: HYPERCHOLESTEROLAEMIA
     Dosage: 10 MILLIGRAM
     Route: 048
     Dates: start: 20020101, end: 20091130
  6. TRAMADOL HYDROCHLORIDE [Concomitant]
     Indication: PAIN
     Dosage: 100 MILLIGRAM
     Route: 048
     Dates: start: 20091101, end: 20091128
  7. VALIUM [Concomitant]
     Indication: PALLIATIVE CARE
     Dosage: 10 MILLIGRAM
     Route: 041
     Dates: start: 20091209, end: 20091209
  8. CITALOPRAM [Concomitant]
     Indication: INSOMNIA
  9. DURAGESIC-100 [Concomitant]
     Indication: PAIN
     Dosage: 8.3333 MICROGRAM
     Route: 062
     Dates: start: 20091128, end: 20091130
  10. BISOPROLOL FUMARATE [Concomitant]
     Indication: HYPERTENSION
     Dosage: 2.5 MILLIGRAM
     Route: 048
     Dates: start: 20090901, end: 20091130
  11. PREDNISOLONE [Concomitant]
     Dosage: 120 MILLIGRAM
     Route: 041
     Dates: start: 20091205, end: 20091208
  12. VITAMIN K TAB [Concomitant]
     Indication: COAGULATION FACTOR DEFICIENCY
     Route: 041
     Dates: start: 20091128, end: 20091128
  13. OMEPRAZOLE [Concomitant]
     Dosage: 40 MILLIGRAM
     Route: 048
     Dates: start: 20091204, end: 20091208
  14. NEXIUM [Concomitant]
     Dosage: 40 MILLIGRAM
     Route: 041
     Dates: start: 20091207, end: 20091207
  15. SINTROM [Suspect]
     Dosage: 1-2MG PRN
     Route: 048
     Dates: start: 19980305, end: 20091130
  16. LORAZEPAM [Concomitant]
     Indication: INSOMNIA
     Dosage: 2 MILLIGRAM
     Route: 048
     Dates: start: 20090128, end: 20091130
  17. MOVIPREP [Concomitant]
     Indication: CONSTIPATION
     Route: 048
     Dates: start: 20090918, end: 20091130
  18. LISINOPRIL [Concomitant]
     Indication: HYPERTENSION
     Dosage: 20 MILLIGRAM
     Route: 048
     Dates: start: 20090901, end: 20091130
  19. MORPHINE [Concomitant]
     Indication: PAIN
     Dosage: 2.5 MILLIGRAM
     Route: 041
     Dates: start: 20091203, end: 20091205
  20. ALLOPURINOL [Concomitant]
     Dosage: 300 MILLIGRAM
     Route: 048
     Dates: start: 20091113, end: 20091126
  21. ALLOPURINOL [Concomitant]
     Dosage: 100 MILLIGRAM
     Route: 048
     Dates: start: 20091207, end: 20091208
  22. CITALOPRAM [Concomitant]
     Indication: DEPRESSION
     Dosage: 20 MILLIGRAM
     Route: 048
     Dates: start: 20080128, end: 20091130
  23. BUMETANIDE [Concomitant]
     Indication: RENAL FAILURE
     Dosage: 2.5 MILLIGRAM
     Route: 048
     Dates: start: 20090706, end: 20091130
  24. FUROSEMIDE [Concomitant]
     Route: 041
     Dates: start: 20091128, end: 20091204
  25. ALLOPURINOL [Concomitant]
     Indication: RENAL FAILURE
     Dosage: 150 MILLIGRAM
     Route: 048
     Dates: start: 20070426, end: 20091130
  26. RANITIDINE [Concomitant]
     Dosage: 50 MILLIGRAM
     Route: 041
     Dates: start: 20091203, end: 20091203
  27. TAMIFLU [Concomitant]
     Indication: INFLUENZA
     Dosage: 75 MILLIGRAM
     Route: 048
     Dates: start: 20091128, end: 20091129
  28. ROCEPHIN [Concomitant]
     Dosage: 2000 MILLIGRAM
     Route: 041
     Dates: start: 20091127, end: 20091203
  29. PREDNISOLONE [Concomitant]
     Indication: RESPIRATORY DISTRESS
     Dosage: 80 MILLIGRAM
     Route: 041
     Dates: start: 20091202, end: 20091204

REACTIONS (6)
  - PULMONARY ALVEOLAR HAEMORRHAGE [None]
  - THROMBOCYTOPENIA [None]
  - TUMOUR FLARE [None]
  - ANAEMIA [None]
  - MULTI-ORGAN FAILURE [None]
  - INTERNATIONAL NORMALISED RATIO INCREASED [None]
